FAERS Safety Report 14004558 (Version 1)
Quarter: 2017Q3

REPORT INFORMATION
  Report Type: Spontaneous
  Country: FR (occurrence: FR)
  Receive Date: 20170922
  Receipt Date: 20170922
  Transmission Date: 20171128
  Serious: Yes (Other)
  Sender: FDA-Public Use
  Company Number: FR-MERCK KGAA-2027280

PATIENT
  Age: 72 Year
  Sex: Female

DRUGS (1)
  1. NOVOTHYROX [Suspect]
     Active Substance: LEVOTHYROXINE SODIUM
     Indication: POST PROCEDURAL HYPOTHYROIDISM
     Dates: start: 201706

REACTIONS (10)
  - Vertigo [Unknown]
  - Eye irritation [Unknown]
  - Gait disturbance [Unknown]
  - Nausea [Unknown]
  - Suicidal ideation [Unknown]
  - Headache [Unknown]
  - Blood thyroid stimulating hormone abnormal [Unknown]
  - Neck pain [Unknown]
  - Malaise [Unknown]
  - Diarrhoea [Not Recovered/Not Resolved]

NARRATIVE: CASE EVENT DATE: 2017
